FAERS Safety Report 21194189 (Version 1)
Quarter: 2022Q3

REPORT INFORMATION
  Report Type: Spontaneous
  Country: US (occurrence: US)
  Receive Date: 20220810
  Receipt Date: 20220810
  Transmission Date: 20221027
  Serious: Yes (Other)
  Sender: FDA-Public Use
  Company Number: US-LUPIN PHARMACEUTICALS INC.-2022-10195

PATIENT
  Age: 3 Year
  Sex: Male

DRUGS (6)
  1. CEPHALEXIN [Suspect]
     Active Substance: CEPHALEXIN
     Indication: Hidradenitis
     Dosage: 250 MG, BID FOR 2 MONTHS
     Route: 048
  2. CLINDAMYCIN [Suspect]
     Active Substance: CLINDAMYCIN
     Indication: Hidradenitis
     Dosage: UNK
     Route: 048
  3. AMOXICILLIN\CLAVULANIC ACID [Suspect]
     Active Substance: AMOXICILLIN\CLAVULANIC ACID
     Indication: Hidradenitis
     Dosage: UNK
     Route: 048
  4. CIPROFLOXACIN [Suspect]
     Active Substance: CIPROFLOXACIN
     Indication: Hidradenitis
     Dosage: UNK
     Route: 048
  5. TRETINOIN [Suspect]
     Active Substance: TRETINOIN
     Indication: Hidradenitis
     Dosage: UNK TOPICAL
     Route: 061
  6. MUPIROCIN [Suspect]
     Active Substance: MUPIROCIN
     Indication: Hidradenitis
     Dosage: UNK
     Route: 061

REACTIONS (1)
  - Therapy non-responder [Unknown]
